FAERS Safety Report 20067437 (Version 1)
Quarter: 2021Q4

REPORT INFORMATION
  Report Type: Spontaneous
  Country: DE (occurrence: DE)
  Receive Date: 20211115
  Receipt Date: 20211115
  Transmission Date: 20220303
  Serious: Yes (Hospitalization)
  Sender: FDA-Public Use
  Company Number: DE-DCGMA-21189793

PATIENT
  Age: 47 Year
  Sex: Female

DRUGS (3)
  1. VENLAFAXINE HYDROCHLORIDE [Suspect]
     Active Substance: VENLAFAXINE HYDROCHLORIDE
     Indication: Attention deficit hyperactivity disorder
     Dosage: 37.5 DOSAGE FORM
     Route: 065
     Dates: start: 20201015
  2. VENLAFAXINE HYDROCHLORIDE [Suspect]
     Active Substance: VENLAFAXINE HYDROCHLORIDE
     Dosage: 75 DOSAGE FORM
     Route: 065
     Dates: start: 20201112, end: 202012
  3. LISDEXAMFETAMINE DIMESYLATE [Suspect]
     Active Substance: LISDEXAMFETAMINE DIMESYLATE
     Indication: Attention deficit hyperactivity disorder
     Dosage: 50 MILLIGRAM
     Route: 065
     Dates: start: 20200417, end: 202012

REACTIONS (2)
  - Anger [Recovered/Resolved]
  - Agitation [Recovered/Resolved]
